FAERS Safety Report 7649394-4 (Version None)
Quarter: 2011Q3

REPORT INFORMATION
  Report Type: 
  Country: None (occurrence: None)
  Receive Date: 20110802
  Receipt Date: 20110721
  Transmission Date: 20111222
  Serious: Yes (Other)
  Sender: FDA-Public Use
  Company Number: US-JNJFOC-20110707257

PATIENT
  Sex: Female
  Weight: 145.15 kg

DRUGS (2)
  1. USTEKINUMAB [Suspect]
     Indication: PSORIASIS
     Route: 058
     Dates: start: 20100301
  2. USTEKINUMAB [Suspect]
     Route: 058
     Dates: start: 20110315

REACTIONS (1)
  - LYMPHOMA [None]
